FAERS Safety Report 12146924 (Version 3)
Quarter: 2016Q2

REPORT INFORMATION
  Report Type: Spontaneous
  Country: JP (occurrence: JP)
  Receive Date: 20160304
  Receipt Date: 20160517
  Transmission Date: 20160815
  Serious: Yes (Other)
  Sender: FDA-Public Use
  Company Number: JP-JNJFOC-20160303632

PATIENT
  Age: 34 Year
  Sex: Male
  Weight: 64 kg

DRUGS (3)
  1. REMICADE [Suspect]
     Active Substance: INFLIXIMAB
     Indication: CROHN^S DISEASE
     Dosage: FIRST DOSE
     Route: 042
     Dates: start: 20150827
  2. REMICADE [Suspect]
     Active Substance: INFLIXIMAB
     Indication: CROHN^S DISEASE
     Dosage: 5TH INFUSION
     Route: 042
     Dates: start: 20160201, end: 20160201
  3. ELENTAL [Concomitant]
     Active Substance: AMINO ACIDS\CARBOHYDRATES\MINERALS\SOYBEAN OIL\VITAMINS
     Indication: CROHN^S DISEASE
     Dosage: 3 DOSAGE FORMS
     Route: 048
     Dates: start: 20150823

REACTIONS (4)
  - White blood cell count increased [Recovered/Resolved]
  - Eosinophilia [Recovered/Resolved]
  - Peripheral swelling [Unknown]
  - Weight increased [Unknown]

NARRATIVE: CASE EVENT DATE: 20160215
